FAERS Safety Report 4587545-9 (Version None)
Quarter: 2005Q1

REPORT INFORMATION
  Report Type: 
  Country: None (occurrence: None)
  Receive Date: 20050215
  Receipt Date: 20021024
  Transmission Date: 20050727
  Serious: No
  Sender: FDA-Public Use
  Company Number: C02-T-062

PATIENT

DRUGS (1)
  1. LITHIUM CARBONATE CAP [Suspect]

REACTIONS (4)
  - CHEST PAIN [None]
  - DRUG HYPERSENSITIVITY [None]
  - DYSPNOEA [None]
  - RASH [None]
